FAERS Safety Report 23410522 (Version 1)
Quarter: 2024Q1

REPORT INFORMATION
  Report Type: Spontaneous
  Country: US (occurrence: None)
  Receive Date: 20240116
  Receipt Date: 20240116
  Transmission Date: 20240410
  Serious: Yes (Hospitalization)
  Sender: FDA-Public Use
  Company Number: None

PATIENT
  Sex: Male

DRUGS (3)
  1. SILDENAFIL CITRATE [Suspect]
     Active Substance: SILDENAFIL CITRATE
     Indication: Pulmonary arterial hypertension
     Dosage: FREQUENCY : 3 TIMES A DAY;?
     Route: 048
     Dates: start: 202112
  2. OPSUMIT [Concomitant]
     Active Substance: MACITENTAN
  3. REMODULIN [Concomitant]
     Dosage: 20 MG THREE TIMES DAILY BY MOUTH
     Dates: start: 202112

REACTIONS (3)
  - Respiratory failure [None]
  - Injection site pain [None]
  - Injection site discomfort [None]
